FAERS Safety Report 4724721-6 (Version None)
Quarter: 2005Q3

REPORT INFORMATION
  Report Type: 
  Country: None (occurrence: None)
  Receive Date: 20050720
  Receipt Date: 20050720
  Transmission Date: 20060218
  Serious: Yes (Life-Threatening)
  Sender: FDA-Public Use
  Company Number: None

PATIENT
  Age: 37 Year
  Sex: Female

DRUGS (6)
  1. MORPHINE [Suspect]
     Indication: PROCEDURAL PAIN
     Dosage: 1MG   Q10 MINUTES   INTRAVENOU
     Route: 042
     Dates: start: 20040717, end: 20040717
  2. MORPHINE [Suspect]
     Dosage: 1MG   PER HOUR   INTRAVENOU
     Route: 042
  3. ANCEF [Concomitant]
  4. PERI-COLACE [Concomitant]
  5. ZOFRAN [Concomitant]
  6. LOVENOX [Concomitant]

REACTIONS (3)
  - CARDIO-RESPIRATORY ARREST [None]
  - CYANOSIS [None]
  - LOSS OF CONSCIOUSNESS [None]
